FAERS Safety Report 6295686-3 (Version None)
Quarter: 2009Q3

REPORT INFORMATION
  Report Type: 
  Country: None (occurrence: None)
  Receive Date: 20090804
  Receipt Date: 20090729
  Transmission Date: 20100115
  Serious: Yes (Hospitalization)
  Sender: FDA-Public Use
  Company Number: IE-WYE-G03747309

PATIENT
  Sex: Male
  Weight: 127 kg

DRUGS (2)
  1. EFFEXOR XR [Suspect]
     Indication: DEPRESSION
     Dosage: 75 MG EVERY 1 TOT
     Route: 048
     Dates: start: 20090512, end: 20090512
  2. STILNOX [Concomitant]
     Indication: INSOMNIA
     Dosage: STARTED A FEW MONTHS BEFORE IN 2009, 10MG 1 IN 1 DAY
     Route: 048

REACTIONS (6)
  - DYSPHAGIA [None]
  - DYSPNOEA [None]
  - HYPERAEMIA [None]
  - OESOPHAGEAL DISCOMFORT [None]
  - PALATAL OEDEMA [None]
  - PHARYNGEAL OEDEMA [None]
